FAERS Safety Report 20752596 (Version 1)
Quarter: 2022Q2

REPORT INFORMATION
  Report Type: Spontaneous
  Country: US (occurrence: None)
  Receive Date: 20220426
  Receipt Date: 20220426
  Transmission Date: 20220720
  Serious: No
  Sender: FDA-Public Use
  Company Number: US-ROCHE-2838356

PATIENT
  Age: 83 Year
  Sex: Male
  Weight: 82.628 kg

DRUGS (8)
  1. ESBRIET [Suspect]
     Active Substance: PIRFENIDONE
     Indication: Idiopathic pulmonary fibrosis
     Dosage: 3 (267 MG) TABLETS 3 TIMES DAILY ;ONGOING: YES
     Route: 048
     Dates: start: 2021
  2. ESBRIET [Suspect]
     Active Substance: PIRFENIDONE
     Dosage: 2 (267 MG) TABLETS THREE TIMES DAILY ;ONGOING: NO
     Route: 048
     Dates: start: 2021
  3. PREDNISONE [Concomitant]
     Active Substance: PREDNISONE
     Indication: Idiopathic pulmonary fibrosis
     Route: 048
     Dates: start: 202101, end: 20210525
  4. ATORVASTATIN [Concomitant]
     Active Substance: ATORVASTATIN
     Indication: Blood cholesterol increased
     Route: 048
  5. LOSARTAN POTASSIUM [Concomitant]
     Active Substance: LOSARTAN POTASSIUM
     Indication: Hypertension
     Route: 048
  6. METOPROLOL [Concomitant]
     Active Substance: METOPROLOL
     Indication: Hypertension
     Route: 048
  7. VERAPAMIL [Concomitant]
     Active Substance: VERAPAMIL HYDROCHLORIDE
     Indication: Hypertension
     Dosage: 1 DROP TO RIGHT EYE DAILY
     Route: 031
  8. SILODOSIN [Concomitant]
     Active Substance: SILODOSIN
     Indication: Prostatomegaly
     Route: 048

REACTIONS (7)
  - Gastrointestinal pain [Recovering/Resolving]
  - Fatigue [Recovered/Resolved]
  - Headache [Recovered/Resolved]
  - Pruritus [Recovered/Resolved]
  - Corneal oedema [Recovering/Resolving]
  - Discomfort [Recovered/Resolved]
  - Rash [Unknown]

NARRATIVE: CASE EVENT DATE: 20210501
